FAERS Safety Report 10136998 (Version 1)
Quarter: 2014Q2

REPORT INFORMATION
  Report Type: Spontaneous
  Country: CA (occurrence: None)
  Receive Date: 20140425
  Receipt Date: 20140425
  Transmission Date: 20141212
  Serious: Yes (Other)
  Sender: FDA-Public Use
  Company Number: AG-2014-001480

PATIENT
  Age: 87 Year
  Sex: 0

DRUGS (2)
  1. CHLORAMBUCIL [Suspect]
     Indication: PRODUCT USED FOR UNKNOWN INDICATION
     Dates: start: 20121207, end: 20130109
  2. RITUXAN [Suspect]
     Indication: PRODUCT USED FOR UNKNOWN INDICATION
     Dosage: TWICE
     Dates: start: 20121207, end: 20130109

REACTIONS (2)
  - Bronchospasm [None]
  - Toxicity to various agents [None]
